FAERS Safety Report 6468515-2 (Version None)
Quarter: 2009Q4

REPORT INFORMATION
  Report Type: 
  Country: None (occurrence: None)
  Receive Date: 20091203
  Receipt Date: 20091126
  Transmission Date: 20100525
  Serious: Yes (Hospitalization)
  Sender: FDA-Public Use
  Company Number: FR-JNJFOC-20091107937

PATIENT
  Sex: Female

DRUGS (6)
  1. SPORANOX [Suspect]
     Indication: BRONCHOPULMONARY ASPERGILLOSIS
     Route: 048
     Dates: start: 20090109, end: 20090306
  2. AUGMENTIN [Suspect]
     Indication: LUNG INFECTION
     Route: 048
     Dates: start: 20090301, end: 20090306
  3. IMOVANE [Suspect]
     Indication: DRUG USE FOR UNKNOWN INDICATION
     Route: 048
  4. LEVOTHYROXINE SODIUM [Concomitant]
     Route: 065
  5. SERETIDE [Concomitant]
     Route: 055
  6. BRONCHODUAL [Concomitant]
     Route: 055

REACTIONS (2)
  - CHOLESTASIS [None]
  - CYTOLYTIC HEPATITIS [None]
